FAERS Safety Report 9500033 (Version 1)
Quarter: 2013Q3

REPORT INFORMATION
  Report Type: Spontaneous
  Country: GB (occurrence: None)
  Receive Date: 20130903
  Receipt Date: 20130903
  Transmission Date: 20140515
  Serious: Yes (Death)
  Sender: FDA-Public Use
  Company Number: SYM-2013-09567

PATIENT
  Age: 64 Year
  Sex: Male

DRUGS (5)
  1. TARGRETIN [Suspect]
     Indication: MYCOSIS FUNGOIDES
     Route: 048
     Dates: start: 201210
  2. FENOFIBRATE (FENOFIBRATE) (FENOFIBRATE) [Concomitant]
  3. SIMVASTATIN (SIMVASTATIN) [Concomitant]
  4. THYROXINE (LEVOTHYROXINE SODIUM) [Concomitant]
  5. PUVA (PSORALEN) (PSORALEN) [Concomitant]

REACTIONS (3)
  - Cardiac failure [None]
  - Neutropenia [None]
  - Computerised tomogram thorax abnormal [None]
